FAERS Safety Report 9004306 (Version 1)
Quarter: 2013Q1

REPORT INFORMATION
  Report Type: Spontaneous
  Country: US (occurrence: None)
  Receive Date: 20130104
  Receipt Date: 20130104
  Transmission Date: 20140127
  Serious: Yes (Other)
  Sender: FDA-Public Use
  Company Number: None

PATIENT
  Sex: Female
  Weight: 73.03 kg

DRUGS (1)
  1. PROLIA [Suspect]
     Indication: OSTEOPOROSIS
     Dosage: STANDARD INJECTION 1 EVERY 6 MO. IM
     Route: 030
     Dates: start: 20121005, end: 20121005

REACTIONS (6)
  - Myalgia [None]
  - Product substitution issue [None]
  - Nausea [None]
  - Blood pressure increased [None]
  - Abdominal pain upper [None]
  - Pain in extremity [None]
